FAERS Safety Report 21819018 (Version 3)
Quarter: 2023Q1

REPORT INFORMATION
  Report Type: Spontaneous
  Country: US (occurrence: US)
  Receive Date: 20230104
  Receipt Date: 20230210
  Transmission Date: 20230418
  Serious: No
  Sender: FDA-Public Use
  Company Number: US-Merz Pharmaceuticals GmbH-22-04008

PATIENT
  Age: 59 Year
  Sex: Female

DRUGS (1)
  1. XEOMIN [Suspect]
     Active Substance: INCOBOTULINUMTOXINA
     Indication: Product used for unknown indication
     Dates: start: 20221103, end: 20221103

REACTIONS (4)
  - Injection site mass [Unknown]
  - Injection site induration [Unknown]
  - Drug ineffective [Unknown]
  - Hypersensitivity [Not Recovered/Not Resolved]

NARRATIVE: CASE EVENT DATE: 20220101
